FAERS Safety Report 8475875-X (Version None)
Quarter: 2012Q2

REPORT INFORMATION
  Report Type: 
  Country: None (occurrence: None)
  Receive Date: 20120628
  Receipt Date: 20120621
  Transmission Date: 20120825
  Serious: Yes (Hospitalization)
  Sender: FDA-Public Use
  Company Number: BR-PFIZER INC-2012149918

PATIENT
  Age: 67 Year
  Sex: Male

DRUGS (4)
  1. AZUKON [Concomitant]
     Indication: DIABETES MELLITUS
  2. ENALAPRIL [Concomitant]
     Indication: HYPERTENSION
  3. METFORMIN [Concomitant]
     Indication: DIABETES MELLITUS
  4. CELEBREX [Suspect]
     Indication: PAIN
     Dosage: 200 MG (ONE CAPSULE), 2X/DAY
     Route: 048
     Dates: start: 20120501, end: 20120101

REACTIONS (3)
  - DRUG INEFFECTIVE [None]
  - BACK PAIN [None]
  - INTERVERTEBRAL DISC DISORDER [None]
